FAERS Safety Report 5451350-1 (Version None)
Quarter: 2007Q3

REPORT INFORMATION
  Report Type: 
  Country: None (occurrence: None)
  Receive Date: 20070913
  Receipt Date: 20070904
  Transmission Date: 20080115
  Serious: Yes (Congenital Anomaly)
  Sender: FDA-Public Use
  Company Number: GB-ASTRAZENECA-2007GB01823

PATIENT

DRUGS (3)
  1. PULMICORT [Suspect]
     Indication: ASTHMA
     Dosage: DRUG USED BY MOTHER FOR ASTHMA
     Route: 064
     Dates: start: 20020921, end: 20060124
  2. BRICANYL [Concomitant]
  3. GESTODENE [Concomitant]
     Indication: IN VITRO FERTILISATION
     Dosage: DRUG USED BY MOTHER FOR IN VITRO FERITLISATION
     Dates: start: 20051108

REACTIONS (1)
  - CLEFT LIP [None]
